FAERS Safety Report 4805640-3 (Version None)
Quarter: 2005Q4

REPORT INFORMATION
  Report Type: 
  Country: None (occurrence: None)
  Receive Date: 20051018
  Receipt Date: 20051005
  Transmission Date: 20060501
  Serious: Yes (Other)
  Sender: FDA-Public Use
  Company Number: 2005139768

PATIENT
  Sex: Male
  Weight: 65.7716 kg

DRUGS (4)
  1. DETROL LA [Suspect]
     Indication: HYPERTONIC BLADDER
     Dosage: 4 MG (4 MG, 1 IN 1 D), ORAL
     Route: 048
     Dates: start: 20050101
  2. TYLENOL [Concomitant]
  3. CITRUCEL (METHYLCELLULOSE) [Concomitant]
  4. ARTHRITIS PAIN FORMULA (PARACETAMOL) [Concomitant]

REACTIONS (4)
  - DRUG EFFECT DECREASED [None]
  - MACULAR DEGENERATION [None]
  - RHINORRHOEA [None]
  - TREATMENT NONCOMPLIANCE [None]
